FAERS Safety Report 9592067 (Version 1)
Quarter: 2013Q4

REPORT INFORMATION
  Report Type: Spontaneous
  Country: US (occurrence: US)
  Receive Date: 20131004
  Receipt Date: 20131004
  Transmission Date: 20140711
  Serious: Yes (Other)
  Sender: FDA-Public Use
  Company Number: US-JNJFOC-20130912686

PATIENT
  Age: 38 Year
  Sex: Female
  Weight: 70.31 kg

DRUGS (4)
  1. TYLENOL REGULAR STRENGTH [Suspect]
     Route: 048
  2. TYLENOL REGULAR STRENGTH [Suspect]
     Indication: HEADACHE
     Dosage: AS NEEDED
     Route: 048
     Dates: start: 19991201, end: 2012
  3. TYLENOL 8 HOUR CAPLET [Suspect]
     Route: 048
  4. TYLENOL 8 HOUR CAPLET [Suspect]
     Indication: HEADACHE
     Dosage: AS NEEDED
     Route: 048

REACTIONS (1)
  - Hepatic infection [Recovering/Resolving]
